FAERS Safety Report 5043314-7 (Version None)
Quarter: 2006Q2

REPORT INFORMATION
  Report Type: 
  Country: None (occurrence: None)
  Receive Date: 20060629
  Receipt Date: 20060615
  Transmission Date: 20061013
  Serious: Yes (Hospitalization)
  Sender: FDA-Public Use
  Company Number: 226374

PATIENT
  Sex: Female

DRUGS (3)
  1. XOLAIR [Suspect]
     Indication: ASTHMA
  2. BUDESONIDE [Concomitant]
  3. FORMOTEROL (FORMOTEROL FUMARATE) [Concomitant]

REACTIONS (2)
  - PNEUMONIA [None]
  - RHINITIS [None]
